FAERS Safety Report 8120486-9 (Version None)
Quarter: 2012Q1

REPORT INFORMATION
  Report Type: 
  Country: None (occurrence: None)
  Receive Date: 20120207
  Receipt Date: 20120123
  Transmission Date: 20120608
  Serious: Yes (Other)
  Sender: FDA-Public Use
  Company Number: KR-WATSON-2012-01869

PATIENT
  Age: 6 Year
  Sex: Female

DRUGS (1)
  1. LAMOTRIGINE [Suspect]
     Indication: PETIT MAL EPILEPSY
     Dosage: UNK

REACTIONS (2)
  - RASH [None]
  - ACTIVATED PARTIAL THROMBOPLASTIN TIME PROLONGED [None]
